FAERS Safety Report 7266686-1 (Version None)
Quarter: 2011Q1

REPORT INFORMATION
  Report Type: 
  Country: None (occurrence: None)
  Receive Date: 20110201
  Receipt Date: 20110119
  Transmission Date: 20110831
  Serious: Yes (Hospitalization)
  Sender: FDA-Public Use
  Company Number: US-BIOGENIDEC-2011BI002430

PATIENT
  Age: 41 Year
  Sex: Male
  Weight: 107 kg

DRUGS (2)
  1. TYSABRI [Suspect]
     Indication: MULTIPLE SCLEROSIS
     Route: 042
     Dates: start: 20090624
  2. REMERON [Concomitant]
     Indication: DEPRESSION
     Route: 048

REACTIONS (5)
  - CORONARY ARTERY OCCLUSION [None]
  - DYSPNOEA [None]
  - CONSTIPATION [None]
  - HAEMORRHOIDS [None]
  - DECREASED APPETITE [None]
